FAERS Safety Report 7171387-4 (Version None)
Quarter: 2010Q4

REPORT INFORMATION
  Report Type: 
  Country: None (occurrence: None)
  Receive Date: 20101217
  Receipt Date: 20101208
  Transmission Date: 20110411
  Serious: Yes (Other)
  Sender: FDA-Public Use
  Company Number: US-PFIZER INC-2010168339

PATIENT
  Age: 87 Year
  Sex: Female

DRUGS (2)
  1. XANAX [Suspect]
  2. AMBIEN [Suspect]

REACTIONS (1)
  - SURGERY [None]
